FAERS Safety Report 16365354 (Version 2)
Quarter: 2019Q2

REPORT INFORMATION
  Report Type: Report from Study
  Country: US (occurrence: US)
  Receive Date: 20190529
  Receipt Date: 20190606
  Transmission Date: 20190711
  Serious: Yes (Death)
  Sender: FDA-Public Use
  Company Number: US-ROCHE-2326820

PATIENT
  Sex: Male

DRUGS (1)
  1. VALCYTE [Suspect]
     Active Substance: VALGANCICLOVIR HYDROCHLORIDE
     Indication: LUNG TRANSPLANT
     Dosage: 1 TABLET  M W F
     Route: 048

REACTIONS (3)
  - Off label use [Unknown]
  - Death [Fatal]
  - Intentional product use issue [Unknown]
